FAERS Safety Report 10565632 (Version 4)
Quarter: 2015Q2

REPORT INFORMATION
  Report Type: Report from Study
  Country: KR (occurrence: KR)
  Receive Date: 20141105
  Receipt Date: 20150608
  Transmission Date: 20150821
  Serious: Yes (Hospitalization)
  Sender: FDA-Public Use
  Company Number: KR-JNJFOC-20140917074

PATIENT
  Sex: Male
  Weight: 89 kg

DRUGS (80)
  1. XARELTO [Suspect]
     Active Substance: RIVAROXABAN
     Indication: THROMBOSIS PROPHYLAXIS
     Route: 048
     Dates: start: 20140820
  2. XARELTO [Suspect]
     Active Substance: RIVAROXABAN
     Indication: CEREBROVASCULAR ACCIDENT PROPHYLAXIS
     Route: 048
     Dates: start: 20140321, end: 20140813
  3. ACETYLCYSTEINE. [Concomitant]
     Active Substance: ACETYLCYSTEINE
     Dosage: 2 AMP DAILY DOSE
     Route: 065
     Dates: start: 20140818, end: 20140820
  4. ACETYLCYSTEINE. [Concomitant]
     Active Substance: ACETYLCYSTEINE
     Route: 065
     Dates: start: 20140821
  5. LACTULOSE. [Concomitant]
     Active Substance: LACTULOSE
     Dosage: 3 PKG DAILY
     Route: 065
     Dates: start: 20140806, end: 20140817
  6. METOCLOPRAMIDE HCL [Concomitant]
     Active Substance: METOCLOPRAMIDE HYDROCHLORIDE
     Dosage: 2 AMP DAILY DOSE
     Route: 065
     Dates: start: 20140818, end: 20140818
  7. HYDROCHLOROTHIAZIDE AND OLMESARTAN [Concomitant]
     Route: 065
     Dates: start: 20140314, end: 20140818
  8. FUROSEMIDE. [Concomitant]
     Active Substance: FUROSEMIDE
     Dosage: 1 AMP DAILY
     Route: 065
     Dates: start: 20140819, end: 20140819
  9. MAGNESIUM OXIDE. [Concomitant]
     Active Substance: MAGNESIUM OXIDE
     Dosage: 3 TAB
     Route: 065
     Dates: start: 20140822, end: 20140831
  10. MAGNESIUM OXIDE. [Concomitant]
     Active Substance: MAGNESIUM OXIDE
     Dosage: 3 TAB
     Route: 065
     Dates: start: 20140902, end: 20140902
  11. CARDUUS MARIANUS [Concomitant]
     Dosage: 1 CAP
     Route: 065
     Dates: start: 20140915, end: 20140915
  12. URSODEOXYCHOLIC ACID [Concomitant]
     Active Substance: URSODIOL
     Dosage: 3 TAB
     Route: 065
     Dates: start: 20140916, end: 20140918
  13. PINAVERIUM BROMIDE [Concomitant]
     Active Substance: PINAVERIUM BROMIDE
     Dosage: 3 TAB
     Route: 065
     Dates: start: 20140923
  14. MEDILAC-S [Concomitant]
     Route: 065
     Dates: start: 20140923
  15. XARELTO [Suspect]
     Active Substance: RIVAROXABAN
     Indication: THROMBOSIS PROPHYLAXIS
     Route: 048
     Dates: start: 20140321, end: 20140813
  16. XARELTO [Suspect]
     Active Substance: RIVAROXABAN
     Indication: ATRIAL FIBRILLATION
     Route: 048
     Dates: start: 20140820
  17. BISACODYL. [Concomitant]
     Active Substance: BISACODYL
     Route: 065
     Dates: start: 20140818, end: 20140818
  18. LACTULOSE. [Concomitant]
     Active Substance: LACTULOSE
     Dosage: 3 PKG DAILY
     Route: 065
     Dates: start: 20140827, end: 20140831
  19. LACTULOSE. [Concomitant]
     Active Substance: LACTULOSE
     Dosage: 1 PKG DAIY
     Route: 065
     Dates: start: 20140805, end: 20140805
  20. CEFAZOLIN SODIUM. [Concomitant]
     Active Substance: CEFAZOLIN SODIUM
     Dosage: 2 VIA
     Route: 065
     Dates: start: 20140911, end: 20140911
  21. TRAMADOL HYDROCHLORIDE. [Concomitant]
     Active Substance: TRAMADOL HYDROCHLORIDE
     Dosage: 1 AMP DAILY
     Route: 065
     Dates: start: 20140828, end: 20140828
  22. MAGNESIUM OXIDE. [Concomitant]
     Active Substance: MAGNESIUM OXIDE
     Dosage: 2 TAB
     Route: 065
     Dates: start: 20140901, end: 20140901
  23. CEFIXIME. [Concomitant]
     Active Substance: CEFIXIME
     Dosage: 100 MG 2 CAPS
     Route: 065
     Dates: start: 20140929
  24. PSEUDOEPHEDRINE HYDROCHLORIDE, TRIPROLIDINE HYDROCHLORIDE [Concomitant]
     Dosage: 3 TAB
     Route: 065
     Dates: start: 20140916
  25. DIGOXIN. [Concomitant]
     Active Substance: DIGOXIN
     Route: 065
     Dates: start: 20140927
  26. ADALAT [Concomitant]
     Active Substance: NIFEDIPINE
     Route: 065
     Dates: start: 20140314, end: 20140818
  27. RANITIDINE HYDROCHLORIDE. [Concomitant]
     Active Substance: RANITIDINE HYDROCHLORIDE
     Route: 065
     Dates: start: 20140821
  28. BISACODYL. [Concomitant]
     Active Substance: BISACODYL
     Route: 065
     Dates: start: 20140825, end: 20140825
  29. LACTULOSE. [Concomitant]
     Active Substance: LACTULOSE
     Dosage: 3 PKG DAILY
     Route: 065
     Dates: start: 20140814
  30. METOCLOPRAMIDE HCL [Concomitant]
     Active Substance: METOCLOPRAMIDE HYDROCHLORIDE
     Dosage: 3 AMP DAILY DOSE
     Route: 065
     Dates: start: 20140819, end: 20140820
  31. FUROSEMIDE. [Concomitant]
     Active Substance: FUROSEMIDE
     Dosage: 1 TAB
     Route: 065
     Dates: start: 20140821, end: 20140821
  32. OLMESARTAN MEDOXOMIL. [Concomitant]
     Active Substance: OLMESARTAN MEDOXOMIL
     Dosage: 1 TABLET
     Route: 065
     Dates: start: 20140927
  33. LACTULOSE. [Concomitant]
     Active Substance: LACTULOSE
     Dosage: 2 PKG DAILY
     Route: 065
     Dates: start: 20140901, end: 20140901
  34. BUPIVACAINE HYDROCHLORIDE. [Concomitant]
     Active Substance: BUPIVACAINE HYDROCHLORIDE
     Route: 065
     Dates: start: 20140818, end: 20140818
  35. DIGOSIN [Concomitant]
     Active Substance: DIGOXIN
     Dosage: 0.5 TAB DAILY DOSE
     Route: 065
     Dates: start: 20130321, end: 20140818
  36. FUROSEMIDE. [Concomitant]
     Active Substance: FUROSEMIDE
     Dosage: 0.5 AMP
     Route: 065
     Dates: start: 20140821, end: 20140821
  37. FUROSEMIDE. [Concomitant]
     Active Substance: FUROSEMIDE
     Route: 065
     Dates: start: 20140824, end: 20140824
  38. CEFIXIME. [Concomitant]
     Active Substance: CEFIXIME
     Dosage: 2 CAP
     Route: 065
     Dates: start: 20140828, end: 20140910
  39. CALCIUM POLYSTYRENE SULFONATE [Concomitant]
     Active Substance: CALCIUM POLYSTYRENE SULFONATE
     Route: 065
     Dates: start: 20140929, end: 20140929
  40. XARELTO [Suspect]
     Active Substance: RIVAROXABAN
     Indication: CEREBROVASCULAR ACCIDENT PROPHYLAXIS
     Route: 048
     Dates: start: 20140820
  41. SALBUTAMOL SULFATE [Concomitant]
     Active Substance: ALBUTEROL SULFATE
     Dosage: 2 AMP DAILY
     Route: 065
     Dates: start: 20140819, end: 20140903
  42. FUROSEMIDE. [Concomitant]
     Active Substance: FUROSEMIDE
     Dosage: 1 TAB
     Route: 065
     Dates: start: 20140824, end: 20140824
  43. MEGESTROL ACETATE. [Concomitant]
     Active Substance: MEGESTROL ACETATE
     Route: 065
     Dates: start: 20140912
  44. IODINATED (125 I) HUMAN SERUM ALBUMIN [Concomitant]
     Dosage: 1 BTL
     Route: 065
     Dates: start: 20140915, end: 20140915
  45. STREPTOKINASE [Concomitant]
     Active Substance: STREPTOKINASE
     Route: 065
     Dates: start: 20140926
  46. LACTOBACILLUS ACIDOPHILUS [Concomitant]
     Active Substance: LACTOBACILLUS ACIDOPHILUS
     Dosage: 6 CAPS
     Route: 065
     Dates: start: 20140926
  47. XARELTO [Suspect]
     Active Substance: RIVAROXABAN
     Indication: ATRIAL FIBRILLATION
     Route: 048
     Dates: start: 20140321, end: 20140813
  48. RANITIDINE HYDROCHLORIDE. [Concomitant]
     Active Substance: RANITIDINE HYDROCHLORIDE
     Dosage: 2 AMP DAILY DOSE
     Route: 065
     Dates: start: 20140818, end: 20140818
  49. LACTULOSE. [Concomitant]
     Active Substance: LACTULOSE
     Dosage: 3 PKG DAILY
     Route: 065
     Dates: start: 20140902, end: 20140912
  50. LACTULOSE. [Concomitant]
     Active Substance: LACTULOSE
     Dosage: 4 PKG DAILY
     Route: 065
     Dates: start: 20140813, end: 20140813
  51. CALVAN [Concomitant]
     Dosage: 0.5 TAB DAILY DOSE
     Route: 065
     Dates: start: 20130321, end: 20140818
  52. ADALAT [Concomitant]
     Active Substance: NIFEDIPINE
     Dosage: 1 TAB DAILY DOSE
     Route: 065
     Dates: start: 20140314, end: 20140818
  53. ACETYLCYSTEINE. [Concomitant]
     Active Substance: ACETYLCYSTEINE
     Dosage: 2 AMP DAILY DOSE
     Route: 065
     Dates: start: 20140818, end: 20140820
  54. ACETYLCYSTEINE. [Concomitant]
     Active Substance: ACETYLCYSTEINE
     Dosage: 4 CAPSULE
     Route: 065
     Dates: start: 20140821
  55. TRAMADOL HYDROCHLORIDE. [Concomitant]
     Active Substance: TRAMADOL HYDROCHLORIDE
     Dosage: 1 AMP DAILY
     Route: 065
     Dates: start: 20140819, end: 20140820
  56. METOCLOPRAMIDE. [Concomitant]
     Active Substance: METOCLOPRAMIDE
     Dosage: 3 TAB
     Route: 065
     Dates: start: 20140821, end: 20140826
  57. FUROSEMIDE. [Concomitant]
     Active Substance: FUROSEMIDE
     Route: 065
     Dates: start: 20140822, end: 20140822
  58. ACETAMINOPHEN. [Concomitant]
     Active Substance: ACETAMINOPHEN
     Dosage: 1 TAB
     Route: 065
     Dates: start: 20140911, end: 20140912
  59. ACETAMINOPHEN. [Concomitant]
     Active Substance: ACETAMINOPHEN
     Dosage: 3 TAB
     Route: 065
     Dates: start: 20140904, end: 20140910
  60. CARDUUS MARIANUS [Concomitant]
     Dosage: 3 CAP
     Route: 065
     Dates: start: 20140916, end: 20140918
  61. STREPTODORNASE [Concomitant]
     Active Substance: STREPTODORNASE
     Route: 065
     Dates: start: 20140926
  62. HYDROCHLOROTHIAZID [Concomitant]
     Active Substance: HYDROCHLOROTHIAZIDE
     Route: 065
     Dates: start: 20140927
  63. RANITIDINE HYDROCHLORIDE. [Concomitant]
     Active Substance: RANITIDINE HYDROCHLORIDE
     Dosage: 3 AMP DAILY DOSE
     Route: 065
     Dates: start: 20140819, end: 20140820
  64. RANITIDINE HYDROCHLORIDE. [Concomitant]
     Active Substance: RANITIDINE HYDROCHLORIDE
     Dosage: 3 AMP DAILY
     Route: 065
     Dates: start: 20140819, end: 20140820
  65. RANITIDINE HYDROCHLORIDE. [Concomitant]
     Active Substance: RANITIDINE HYDROCHLORIDE
     Dosage: 2 AMP DAILY DOSE
     Route: 065
     Dates: start: 20140818, end: 20140818
  66. CEFAZOLIN SODIUM. [Concomitant]
     Active Substance: CEFAZOLIN SODIUM
     Route: 065
     Dates: start: 20140912
  67. VARIDASE [Concomitant]
     Route: 065
     Dates: start: 20140314, end: 20140817
  68. PETHIDINE HCL [Concomitant]
     Dosage: 1 AMP DAILY DOSE
     Route: 065
     Dates: start: 20140818, end: 20140818
  69. TRAMADOL HYDROCHLORIDE. [Concomitant]
     Active Substance: TRAMADOL HYDROCHLORIDE
     Dosage: 1 AMP DAILY
     Route: 065
     Dates: start: 20140830, end: 20140830
  70. TRAMADOL HYDROCHLORIDE. [Concomitant]
     Active Substance: TRAMADOL HYDROCHLORIDE
     Dosage: 1 AMP DAILY
     Route: 065
     Dates: start: 20140825, end: 20140825
  71. FUROSEMIDE. [Concomitant]
     Active Substance: FUROSEMIDE
     Dosage: 1 AMP DAILY
     Route: 065
     Dates: start: 20140822, end: 20140822
  72. BEVANTOLOL HYDROCHLORIDE [Concomitant]
     Active Substance: BEVANTOLOL HYDROCHLORIDE
     Dosage: 0.5 TAB
     Route: 065
     Dates: start: 20140927
  73. CEFAZOLIN SODIUM. [Concomitant]
     Active Substance: CEFAZOLIN SODIUM
     Route: 065
     Dates: start: 20140818, end: 20140827
  74. HYTRIN [Concomitant]
     Active Substance: TERAZOSIN HYDROCHLORIDE
     Dosage: 1 TAB DAILY DOSE
     Route: 065
     Dates: start: 20140314, end: 20140817
  75. FUROSEMIDE. [Concomitant]
     Active Substance: FUROSEMIDE
     Route: 065
     Dates: start: 20140824
  76. FUROSEMIDE. [Concomitant]
     Active Substance: FUROSEMIDE
     Route: 065
     Dates: start: 20140902, end: 20140902
  77. MAGNESIUM OXIDE. [Concomitant]
     Active Substance: MAGNESIUM OXIDE
     Dosage: 2 TAB
     Route: 065
     Dates: start: 20140821, end: 20140821
  78. FUROSEMIDE. [Concomitant]
     Active Substance: FUROSEMIDE
     Dosage: 1 TAB
     Route: 065
     Dates: start: 20140819, end: 20140829
  79. PSEUDOEPHEDRINE HYDROCHLORIDE, TRIPROLIDINE HYDROCHLORIDE [Concomitant]
     Dosage: 1 TAB
     Route: 065
     Dates: start: 20140915, end: 20140915
  80. URSODEOXYCHOLIC ACID [Concomitant]
     Active Substance: URSODIOL
     Dosage: 1 TAB
     Route: 065
     Dates: start: 20140915, end: 20140915

REACTIONS (8)
  - Post procedural infection [Recovered/Resolved]
  - Diarrhoea [Recovered/Resolved]
  - Lung lobectomy [Recovered/Resolved]
  - Hypophagia [Recovered/Resolved]
  - Lung neoplasm malignant [Recovered/Resolved]
  - Asthenia [Recovered/Resolved]
  - Liver function test abnormal [Recovered/Resolved]
  - Constipation [Recovering/Resolving]

NARRATIVE: CASE EVENT DATE: 20140729
